FAERS Safety Report 18918054 (Version 2)
Quarter: 2021Q2

REPORT INFORMATION
  Report Type: Spontaneous
  Country: JP (occurrence: JP)
  Receive Date: 20210220
  Receipt Date: 20210430
  Transmission Date: 20210717
  Serious: Yes (Other)
  Sender: FDA-Public Use
  Company Number: JP-ROCHE-2774102

PATIENT
  Age: 61 Year
  Sex: Female
  Weight: 40 kg

DRUGS (6)
  1. CINAL (JAPAN) [Concomitant]
  2. HIBON [Concomitant]
     Active Substance: RIBOFLAVIN
     Dosage: DOSAGE IS UNCERTAIN.
     Route: 065
  3. KADCYLA [Suspect]
     Active Substance: ADO-TRASTUZUMAB EMTANSINE
     Indication: BREAST CANCER
     Route: 041
  4. METHYCOBAL [Concomitant]
     Active Substance: METHYLCOBALAMIN
  5. PYDOXAL [Concomitant]
     Active Substance: PYRIDOXAL
  6. NAUZELIN [Concomitant]
     Active Substance: DOMPERIDONE

REACTIONS (1)
  - Lung disorder [Recovered/Resolved]

NARRATIVE: CASE EVENT DATE: 20210118
